FAERS Safety Report 8378420-2 (Version None)
Quarter: 2012Q2

REPORT INFORMATION
  Report Type: 
  Country: None (occurrence: None)
  Receive Date: 20120522
  Receipt Date: 20111220
  Transmission Date: 20120825
  Serious: No
  Sender: FDA-Public Use
  Company Number: US-ASTRAZENECA-2011SE77458

PATIENT
  Age: 51 Year
  Sex: Female

DRUGS (17)
  1. DIFLUCAN [Concomitant]
     Indication: EYE INFECTION FUNGAL
  2. DILAUDID [Concomitant]
     Indication: PAIN
  3. OMEPRAZOLE [Suspect]
     Route: 048
     Dates: start: 20110726
  4. SIMVASTATIN [Concomitant]
  5. ATIVAN [Concomitant]
  6. DOXYCYCLINE HYCLATE [Concomitant]
  7. CIPROFLOXACIN HCL [Concomitant]
  8. TAMOXIFEN CITRATE [Concomitant]
  9. ARIMIDEX [Concomitant]
  10. GABAPENTIN [Concomitant]
  11. FIRST-BXN MOUTHWASH SUSP [Concomitant]
  12. FLEXERIL PATCH [Concomitant]
  13. NAPROXEN (ALEVE) [Concomitant]
  14. TRAMADOL HCL [Concomitant]
  15. TREXIMET [Concomitant]
  16. PROCHLORPERAZINE MALEATE [Concomitant]
  17. CYMBALTA [Concomitant]

REACTIONS (1)
  - EYE INFECTION FUNGAL [None]
